FAERS Safety Report 25208011 (Version 1)
Quarter: 2025Q2

REPORT INFORMATION
  Report Type: Spontaneous
  Country: CA (occurrence: CA)
  Receive Date: 20250417
  Receipt Date: 20250417
  Transmission Date: 20250717
  Serious: Yes (Hospitalization, Other)
  Sender: RANBAXY
  Company Number: CA-SUN PHARMACEUTICAL INDUSTRIES LTD-2025R1-503620

PATIENT
  Age: 67 Year
  Sex: Male

DRUGS (2)
  1. CEFTRIAXONE [Suspect]
     Active Substance: CEFTRIAXONE
     Indication: Whipple^s disease
     Dosage: 2 GRAM, DAILY
     Route: 042
  2. COTRIMOXAZOLE [Suspect]
     Active Substance: SULFAMETHOXAZOLE\TRIMETHOPRIM
     Indication: Whipple^s disease
     Route: 048

REACTIONS (2)
  - Disease recurrence [Unknown]
  - Immune reconstitution inflammatory syndrome [Recovered/Resolved]
